FAERS Safety Report 18720984 (Version 1)
Quarter: 2021Q1

REPORT INFORMATION
  Report Type: Spontaneous
  Country: US (occurrence: US)
  Receive Date: 20210108
  Receipt Date: 20210108
  Transmission Date: 20210419
  Serious: No
  Sender: FDA-Public Use
  Company Number: US-TEIKOKU PHARMA USA-TPU2020-00963

PATIENT
  Sex: Female
  Weight: 89.44 kg

DRUGS (7)
  1. INSULIN [Concomitant]
     Active Substance: INSULIN NOS
     Dosage: FAST ACTING
  2. TRAMADOL. [Suspect]
     Active Substance: TRAMADOL
     Indication: PRODUCT USED FOR UNKNOWN INDICATION
     Dosage: 15 MG 1 TABLET TWICE A DAY BUT CAN USE UP TO 6 HOURS
  3. LIDOCAINE. [Suspect]
     Active Substance: LIDOCAINE
     Indication: BACK PAIN
  4. CELEBREX [Concomitant]
     Active Substance: CELECOXIB
  5. LIDODERM [Suspect]
     Active Substance: LIDOCAINE
     Dosage: THREE AREAS AT A TIME ANYWHERE SHE HAS PAIN SUCH AS HER RIGHT ARM, NECK, LOWER BACK AND JOINTS
     Route: 061
     Dates: start: 2014
  6. VOLTAREN [Concomitant]
     Active Substance: DICLOFENAC SODIUM
  7. LIDODERM [Suspect]
     Active Substance: LIDOCAINE
     Indication: BACK PAIN
     Route: 061
     Dates: start: 2004

REACTIONS (5)
  - Gait disturbance [Not Recovered/Not Resolved]
  - Prescription drug used without a prescription [Recovered/Resolved]
  - Insomnia [Unknown]
  - Somnolence [Not Recovered/Not Resolved]
  - Pain [Unknown]

NARRATIVE: CASE EVENT DATE: 2004
